FAERS Safety Report 17789615 (Version 1)
Quarter: 2020Q2

REPORT INFORMATION
  Report Type: Spontaneous
  Country: CN (occurrence: CN)
  Receive Date: 20200514
  Receipt Date: 20200514
  Transmission Date: 20200714
  Serious: Yes (Other)
  Sender: FDA-Public Use
  Company Number: CN-ROCHE-2598610

PATIENT

DRUGS (2)
  1. HERCEPTIN [Suspect]
     Active Substance: TRASTUZUMAB
     Indication: BREAST CANCER
     Route: 065
  2. XELODA [Suspect]
     Active Substance: CAPECITABINE
     Indication: BREAST CANCER
     Dosage: DOSE REDUCED ON AN UNSPECIFIED DATE
     Route: 048

REACTIONS (2)
  - Palmar-plantar erythrodysaesthesia syndrome [Unknown]
  - Chest wall mass [Unknown]
